FAERS Safety Report 7776632-X (Version None)
Quarter: 2011Q3

REPORT INFORMATION
  Report Type: 
  Country: None (occurrence: None)
  Receive Date: 20110926
  Receipt Date: 20110912
  Transmission Date: 20111222
  Serious: Yes (Death, Hospitalization)
  Sender: FDA-Public Use
  Company Number: US-RANBAXY-2011US-48104

PATIENT
  Age: 44 Year
  Sex: Female

DRUGS (1)
  1. LOPERAMIDE HCL [Suspect]
     Indication: PRODUCT USED FOR UNKNOWN INDICATION
     Dosage: UNK, UNK
     Route: 048

REACTIONS (6)
  - MIOSIS [None]
  - HYPOTONIA [None]
  - HEART RATE INCREASED [None]
  - PUPIL FIXED [None]
  - ALTERED STATE OF CONSCIOUSNESS [None]
  - COMPLETED SUICIDE [None]
